FAERS Safety Report 7939853-9 (Version None)
Quarter: 2011Q4

REPORT INFORMATION
  Report Type: 
  Country: None (occurrence: None)
  Receive Date: 20111125
  Receipt Date: 20111114
  Transmission Date: 20120403
  Serious: Yes (Other)
  Sender: FDA-Public Use
  Company Number: JP-BRISTOL-MYERS SQUIBB COMPANY-16228793

PATIENT
  Age: 36 Year
  Sex: Female

DRUGS (3)
  1. CYCLOPHOSPHAMIDE [Suspect]
     Indication: LEIOMYOSARCOMA
     Dosage: INTIALLY 50% DOSE IN 1ST CYCLE TILL 15TH DAY, THEN FULL DOSE IN 2ND CYCLE 28TH DAY
  2. VINCRISTINE SULFATE [Suspect]
     Indication: LEIOMYOSARCOMA
     Dosage: INTIALLY 50% DOSE IN 1ST CYCLE TILL 15TH DAY, THEN FULL DOSE IN 2ND CYCLE 28TH DAY
  3. DACTINOMYCIN [Suspect]
     Indication: LEIOMYOSARCOMA
     Dosage: INTIALLY 50% DOSE IN 1ST CYCLE TILL 15TH DAY, THEN FULL DOSE IN 2ND CYCLE 28TH DAY

REACTIONS (1)
  - TUMOUR LYSIS SYNDROME [None]
